FAERS Safety Report 9100702 (Version 1)
Quarter: 2013Q1

REPORT INFORMATION
  Report Type: Spontaneous
  Country: PL (occurrence: PL)
  Receive Date: 20130215
  Receipt Date: 20130215
  Transmission Date: 20140127
  Serious: Yes (Hospitalization, Other)
  Sender: FDA-Public Use
  Company Number: PL-JNJFOC-20130203090

PATIENT
  Age: 30 Year
  Sex: Female

DRUGS (5)
  1. REMICADE [Suspect]
     Indication: CROHN^S DISEASE
     Dosage: 7TH INFUSION
     Route: 042
     Dates: start: 20130123, end: 201301
  2. REMICADE [Suspect]
     Indication: CROHN^S DISEASE
     Route: 042
     Dates: start: 201203
  3. SALOFALK [Concomitant]
     Indication: CROHN^S DISEASE
     Dosage: FREQUENCY ^3X2^
     Route: 065
  4. EUTHYROX [Concomitant]
     Indication: HYPOTHYROIDISM
     Route: 065
  5. AZATHIOPRINE [Concomitant]
     Indication: CROHN^S DISEASE
     Route: 065

REACTIONS (1)
  - Dermatitis exfoliative generalised [Not Recovered/Not Resolved]
